FAERS Safety Report 8727242 (Version 2)
Quarter: 2015Q2

REPORT INFORMATION
  Report Type: Report from Study
  Country: US (occurrence: US)
  Receive Date: 20120816
  Receipt Date: 20150401
  Transmission Date: 20150821
  Serious: Yes (Other)
  Sender: FDA-Public Use
  Company Number: US-ROCHE-1101971

PATIENT
  Sex: Female

DRUGS (2)
  1. ACETYLSALICYLIC ACID [Concomitant]
     Active Substance: ASPIRIN
     Route: 065
  2. ACTIVASE [Suspect]
     Active Substance: ALTEPLASE
     Indication: MYOCARDIAL INFARCTION
     Dosage: 85MG/85ML
     Route: 065

REACTIONS (5)
  - Cardiac failure [Unknown]
  - Abdominal pain upper [Unknown]
  - Nausea [Unknown]
  - Pulmonary congestion [Unknown]
  - Back pain [Unknown]
